FAERS Safety Report 21026651 (Version 1)
Quarter: 2022Q2

REPORT INFORMATION
  Report Type: Spontaneous
  Country: US (occurrence: None)
  Receive Date: 20220629
  Receipt Date: 20220629
  Transmission Date: 20220720
  Serious: Yes (Hospitalization)
  Sender: FDA-Public Use
  Company Number: None

PATIENT
  Sex: Female

DRUGS (2)
  1. ADAKVEO [Suspect]
     Active Substance: CRIZANLIZUMAB-TMCA
     Indication: Sickle cell disease
     Dosage: FREQUENCY : MONTHLY;?OTHER ROUTE : PORT;?
     Route: 050
     Dates: start: 20210729
  2. DEFEROXAMINE MESYLATE [Suspect]
     Active Substance: DEFEROXAMINE MESYLATE
     Indication: Sickle cell disease
     Dosage: FREQUENCY : MONTHLY;?OTHER ROUTE : PORT;?
     Route: 050
     Dates: start: 20210729

REACTIONS (2)
  - Sickle cell anaemia with crisis [None]
  - Central venous catheterisation [None]
